FAERS Safety Report 9770116 (Version 2)
Quarter: 2013Q4

REPORT INFORMATION
  Report Type: Spontaneous
  Country: US (occurrence: US)
  Receive Date: 20131218
  Receipt Date: 20131218
  Transmission Date: 20140711
  Serious: No
  Sender: FDA-Public Use
  Company Number: US-VERTEX PHARMACEUTICALS INC-AE-2011-000806

PATIENT
  Age: 55 Year
  Sex: Male
  Weight: 99.55 kg

DRUGS (7)
  1. INCIVEK [Suspect]
     Indication: HEPATITIS C
     Route: 048
     Dates: start: 20110801
  2. PEGASYS [Concomitant]
     Indication: HEPATITIS C
     Route: 058
     Dates: start: 20110731
  3. RIBAVIRIN [Concomitant]
     Indication: HEPATITIS C
     Dates: start: 20110801
  4. ATENOLOL [Concomitant]
     Indication: HYPERTENSION
     Route: 048
  5. PRILOSEC [Concomitant]
     Indication: GASTROOESOPHAGEAL REFLUX DISEASE
     Route: 048
  6. PRILOSEC [Concomitant]
     Indication: DYSPEPSIA
  7. BENADRYL [Concomitant]

REACTIONS (4)
  - Haemolytic anaemia [Unknown]
  - Blood bilirubin increased [Unknown]
  - Rectal haemorrhage [Unknown]
  - Diarrhoea [Unknown]
